FAERS Safety Report 6867643-7 (Version None)
Quarter: 2010Q3

REPORT INFORMATION
  Report Type: 
  Country: None (occurrence: None)
  Receive Date: 20100722
  Receipt Date: 20091106
  Transmission Date: 20110219
  Serious: No
  Sender: FDA-Public Use
  Company Number: US-BAUSCH-2009BL005612

PATIENT
  Age: 32 Year
  Sex: Female
  Weight: 52 kg

DRUGS (1)
  1. OPCON-A [Suspect]
     Indication: OCULAR HYPERAEMIA
     Route: 047
     Dates: start: 20091105, end: 20091105

REACTIONS (4)
  - BLEPHAROSPASM [None]
  - INSOMNIA [None]
  - MYDRIASIS [None]
  - VISION BLURRED [None]
